FAERS Safety Report 5884763-4 (Version None)
Quarter: 2008Q3

REPORT INFORMATION
  Report Type: 
  Country: None (occurrence: None)
  Receive Date: 20080916
  Receipt Date: 20080909
  Transmission Date: 20090109
  Serious: Yes (Death)
  Sender: FDA-Public Use
  Company Number: US-AVENTIS-200815191GDDC

PATIENT
  Age: 53 Year
  Sex: Male
  Weight: 74.84 kg

DRUGS (9)
  1. TAXOTERE [Suspect]
     Route: 042
     Dates: start: 20080421, end: 20080526
  2. FLUOROURACIL [Suspect]
     Dosage: DOSE: 600 X 5 DAYS
     Route: 042
     Dates: start: 20080421, end: 20080526
  3. HYDROXYUREA [Concomitant]
  4. DEXAMETHASONE [Concomitant]
  5. DIPHENHYDRAMINE HCL [Concomitant]
  6. ONDANSETRON [Concomitant]
     Dates: start: 20080421, end: 20080603
  7. MORPHINE [Concomitant]
  8. LORAZEPAM [Concomitant]
  9. COLACE [Concomitant]
     Dates: start: 20080514, end: 20080603

REACTIONS (1)
  - SUBSTANCE ABUSE [None]
